FAERS Safety Report 23628108 (Version 1)
Quarter: 2024Q1

REPORT INFORMATION
  Report Type: Spontaneous
  Country: US (occurrence: US)
  Receive Date: 20240313
  Receipt Date: 20240313
  Transmission Date: 20240410
  Serious: Yes (Disabling)
  Sender: FDA-Public Use
  Company Number: US-SA-SAC20240312000934

PATIENT
  Age: 57 Year
  Sex: Female

DRUGS (1)
  1. DUPIXENT [Suspect]
     Active Substance: DUPILUMAB
     Indication: Dermatitis atopic
     Dosage: 300 MG, QOW
     Route: 058
     Dates: start: 202306

REACTIONS (9)
  - Loss of personal independence in daily activities [Unknown]
  - Skin haemorrhage [Unknown]
  - Dermatitis [Unknown]
  - Dry skin [Unknown]
  - Skin hypertrophy [Unknown]
  - Skin exfoliation [Unknown]
  - Nail picking [Unknown]
  - Erythema [Unknown]
  - Drug ineffective [Unknown]
